FAERS Safety Report 7274645-8 (Version None)
Quarter: 2011Q1

REPORT INFORMATION
  Report Type: 
  Country: None (occurrence: None)
  Receive Date: 20110202
  Receipt Date: 20110202
  Transmission Date: 20110831
  Serious: No
  Sender: FDA-Public Use
  Company Number: None

PATIENT
  Age: 72 Year
  Sex: Male
  Weight: 76.6579 kg

DRUGS (1)
  1. CRESTOR [Suspect]
     Dosage: 40MG DAILY PO
     Route: 048
     Dates: start: 20100401, end: 20110110

REACTIONS (3)
  - MOVEMENT DISORDER [None]
  - MYALGIA [None]
  - ACTIVITIES OF DAILY LIVING IMPAIRED [None]
